FAERS Safety Report 10259266 (Version 1)
Quarter: 2014Q2

REPORT INFORMATION
  Report Type: Spontaneous
  Country: US (occurrence: US)
  Receive Date: 20140625
  Receipt Date: 20140625
  Transmission Date: 20141212
  Serious: No
  Sender: FDA-Public Use
  Company Number: US-ASTELLAS-2014US000449

PATIENT
  Sex: Female

DRUGS (3)
  1. VESICARE [Suspect]
     Indication: CYSTITIS INTERSTITIAL
     Route: 048
     Dates: start: 201311
  2. VESICARE [Suspect]
     Indication: POLLAKIURIA
  3. VESICARE [Suspect]
     Indication: BLADDER SPASM

REACTIONS (2)
  - Off label use [Unknown]
  - Therapeutic response changed [Unknown]
